FAERS Safety Report 7498874-3 (Version None)
Quarter: 2011Q2

REPORT INFORMATION
  Report Type: 
  Country: None (occurrence: None)
  Receive Date: 20110524
  Receipt Date: 20110429
  Transmission Date: 20111010
  Serious: Yes (Hospitalization, Other)
  Sender: FDA-Public Use
  Company Number: US-BAYER-201032664NA

PATIENT
  Age: 30 Year
  Sex: Female
  Weight: 107 kg

DRUGS (3)
  1. ZOLOFT [Concomitant]
  2. LOESTRIN 1.5/30 [Concomitant]
  3. YAZ [Suspect]
     Indication: CONTRACEPTION
     Route: 048
     Dates: start: 20060101, end: 20061101

REACTIONS (8)
  - NAUSEA [None]
  - MENTAL DISORDER [None]
  - CHOLECYSTITIS CHRONIC [None]
  - BILIARY COLIC [None]
  - LIBIDO DECREASED [None]
  - VOMITING [None]
  - ABDOMINAL PAIN UPPER [None]
  - SKIN DISCOLOURATION [None]
